FAERS Safety Report 14586092 (Version 1)
Quarter: 2018Q1

REPORT INFORMATION
  Report Type: Spontaneous
  Country: SE (occurrence: SE)
  Receive Date: 20180301
  Receipt Date: 20180301
  Transmission Date: 20180509
  Serious: Yes (Other)
  Sender: FDA-Public Use
  Company Number: SE-KRKA, D.D., NOVO MESTO-2042802

PATIENT
  Age: 69 Year
  Sex: Male

DRUGS (14)
  1. KALIUMPERMANGANAT APL [Concomitant]
  2. ELIQUIS [Concomitant]
     Active Substance: APIXABAN
  3. ENALAPRIL MALEATE. [Suspect]
     Active Substance: ENALAPRIL MALEATE
     Indication: HYPERTENSION
     Route: 048
     Dates: start: 20170622, end: 20170628
  4. IMOVANE [Concomitant]
     Active Substance: ZOPICLONE
  5. CITODON [Concomitant]
     Active Substance: ACETAMINOPHEN\CODEINE PHOSPHATE
  6. KESTINE [Concomitant]
     Active Substance: EBASTINE
  7. PROPAVAN [Concomitant]
     Active Substance: PROPIOMAZINE
  8. OMEPRAZOLE. [Concomitant]
     Active Substance: OMEPRAZOLE
  9. PROPYLESS [Concomitant]
  10. BISOPROLOL FUMARATE. [Concomitant]
     Active Substance: BISOPROLOL FUMARATE
  11. ALVEDON [Concomitant]
     Active Substance: ACETAMINOPHEN
  12. DIPRODERM [Concomitant]
     Active Substance: BETAMETHASONE DIPROPIONATE
  13. SYMBICORT [Concomitant]
     Active Substance: BUDESONIDE\FORMOTEROL FUMARATE DIHYDRATE
  14. CETIRIZINE [Concomitant]
     Active Substance: CETIRIZINE HYDROCHLORIDE

REACTIONS (2)
  - Pharyngeal oedema [Recovered/Resolved]
  - Throat irritation [Recovered/Resolved]

NARRATIVE: CASE EVENT DATE: 20170625
